FAERS Safety Report 9665920 (Version 1)
Quarter: 2013Q4

REPORT INFORMATION
  Report Type: Spontaneous
  Country: US (occurrence: None)
  Receive Date: 20131101
  Receipt Date: 20131101
  Transmission Date: 20140711
  Serious: Yes (Other)
  Sender: FDA-Public Use
  Company Number: None

PATIENT
  Age: 35 Year
  Sex: Female
  Weight: 83.92 kg

DRUGS (1)
  1. SUBOXONE [Suspect]
     Indication: DRUG DEPENDENCE
     Dosage: 12MG/1 1/2 STRIPS, TAKEN UNDER THE TONGUE
     Dates: start: 20131023, end: 20131030

REACTIONS (8)
  - Local swelling [None]
  - Local swelling [None]
  - Joint swelling [None]
  - Local swelling [None]
  - Gait disturbance [None]
  - Heart rate irregular [None]
  - Pain in extremity [None]
  - Pain in extremity [None]
